FAERS Safety Report 7865395-5 (Version None)
Quarter: 2011Q4

REPORT INFORMATION
  Report Type: 
  Country: None (occurrence: None)
  Receive Date: 20111028
  Receipt Date: 20101213
  Transmission Date: 20120403
  Serious: No
  Sender: FDA-Public Use
  Company Number: US-GLAXOSMITHKLINE-A0899551A

PATIENT
  Age: 81 Year
  Sex: Female

DRUGS (7)
  1. ASPIRIN [Concomitant]
  2. ADVAIR DISKUS 100/50 [Suspect]
     Indication: PRODUCTIVE COUGH
     Dosage: 1PUFF PER DAY
     Route: 055
     Dates: start: 20101204, end: 20101207
  3. PLAVIX [Concomitant]
  4. VYTORIN [Concomitant]
  5. LEVOTHYROXINE SODIUM [Concomitant]
  6. BENICAR [Concomitant]
  7. VENTOLIN [Suspect]
     Indication: PRODUCTIVE COUGH
     Dosage: 2PUFF PER DAY
     Route: 055
     Dates: start: 20101204, end: 20101207

REACTIONS (2)
  - NAUSEA [None]
  - CHEST PAIN [None]
